FAERS Safety Report 9516549 (Version 1)
Quarter: 2013Q1

REPORT INFORMATION
  Report Type: Spontaneous
  Country: US (occurrence: None)
  Receive Date: 20130305
  Receipt Date: 20130305
  Transmission Date: 20140127
  Serious: Yes (Other)
  Sender: FDA-Public Use
  Company Number: 163-21880-12011933

PATIENT
  Age: 59 Year
  Sex: Male
  Weight: 63.05 kg

DRUGS (6)
  1. REVLIMID (LENALIDOMIDE) (25 MILLIGRAM, CAPSULES) [Suspect]
     Indication: LYMPHOMA
     Dosage: 25 MG, 1 IN 1 D, PO
     Route: 048
     Dates: start: 201110
  2. OXYCODONE (OXYCODONE) [Concomitant]
  3. ASPIRIN (ACETYLSALICYLIC ACID) [Concomitant]
  4. CLONAZEPAM (CLONAZEPAM) [Concomitant]
  5. POTASSIUM CHLORIDE (POTASSIUM CHLORIDE) [Concomitant]
  6. ALBUTEROL (SALBUTAMOL) [Concomitant]

REACTIONS (2)
  - Neutropenia [None]
  - Thrombocytopenia [None]
